FAERS Safety Report 23364817 (Version 2)
Quarter: 2024Q1

REPORT INFORMATION
  Report Type: Report from Study
  Country: US (occurrence: US)
  Receive Date: 20240104
  Receipt Date: 20240117
  Transmission Date: 20240410
  Serious: Yes (Other)
  Sender: FDA-Public Use
  Company Number: US-ALXN-202312USA001593US

PATIENT
  Sex: Male

DRUGS (6)
  1. SOLIRIS [Suspect]
     Active Substance: ECULIZUMAB
     Indication: Product used for unknown indication
     Dosage: UNK
     Route: 065
  2. PREDNISONE [Concomitant]
     Active Substance: PREDNISONE
     Indication: Product used for unknown indication
     Dosage: 5 MILLIGRAM
     Route: 048
  3. PREDNISONE [Concomitant]
     Active Substance: PREDNISONE
     Dosage: 7.5 MILLIGRAM, QW
     Route: 065
  4. PREDNISONE [Concomitant]
     Active Substance: PREDNISONE
     Dosage: 2.5 MILLIGRAM, QW
     Route: 065
  5. PENICILLIN V POTASSIUM MEIJI SEIKA [Concomitant]
     Indication: Product used for unknown indication
     Dosage: 500 MILLIGRAM, Q12H
     Route: 065
  6. MODAFINIL [Concomitant]
     Active Substance: MODAFINIL
     Indication: Fatigue
     Dosage: UNK
     Route: 065

REACTIONS (16)
  - Urinary retention [Unknown]
  - Fatigue [Unknown]
  - Asthenia [Unknown]
  - Hypoaesthesia [Unknown]
  - Neuralgia [Unknown]
  - Snoring [Unknown]
  - Pollakiuria [Unknown]
  - COVID-19 [Recovered/Resolved]
  - Condition aggravated [Unknown]
  - Burning sensation [Unknown]
  - Paraesthesia [Unknown]
  - Visual impairment [Unknown]
  - Mood altered [Unknown]
  - Pain [Unknown]
  - Gait disturbance [Unknown]
  - Alopecia [Unknown]

NARRATIVE: CASE EVENT DATE: 20230501
